FAERS Safety Report 5733623-8 (Version None)
Quarter: 2008Q2

REPORT INFORMATION
  Report Type: 
  Country: None (occurrence: None)
  Receive Date: 20080509
  Receipt Date: 20080429
  Transmission Date: 20081010
  Serious: Yes (Congenital Anomaly, Other)
  Sender: FDA-Public Use
  Company Number: GB-ABBOTT-08P-167-0449726-00

PATIENT
  Age: 1 Day
  Sex: Male

DRUGS (1)
  1. VALPROATE SODIUM [Suspect]
     Indication: DRUG EXPOSURE DURING PREGNANCY
     Route: 064

REACTIONS (15)
  - ASOCIAL BEHAVIOUR [None]
  - CONGENITAL NOSE MALFORMATION [None]
  - DEPRESSION [None]
  - DISTURBANCE IN ATTENTION [None]
  - DRUG EXPOSURE DURING PREGNANCY [None]
  - DYSMORPHISM [None]
  - EDUCATIONAL PROBLEM [None]
  - FOETAL ANTICONVULSANT SYNDROME [None]
  - HEAD INJURY [None]
  - IRRITABILITY [None]
  - MATERNAL DRUGS AFFECTING FOETUS [None]
  - MEMORY IMPAIRMENT [None]
  - POSTMATURE BABY [None]
  - SKULL MALFORMATION [None]
  - SPEECH DISORDER DEVELOPMENTAL [None]
